FAERS Safety Report 10108975 (Version 2)
Quarter: 2014Q2

REPORT INFORMATION
  Report Type: Spontaneous
  Country: US (occurrence: US)
  Receive Date: 20140425
  Receipt Date: 20140521
  Transmission Date: 20141212
  Serious: Yes (Hospitalization, Other)
  Sender: FDA-Public Use
  Company Number: US-UCBSA-119120

PATIENT
  Age: 21 Year
  Sex: Female
  Weight: 58.96 kg

DRUGS (9)
  1. KEPPRA [Suspect]
     Indication: CONVULSION
     Dosage: TAKING FOR SEVERAL YEARS
     Route: 048
  2. FOLVITE [Concomitant]
  3. LAMICTAL [Concomitant]
     Dosage: 150MG 2 IN AM 3 IN PM
     Route: 048
  4. OMNICEF [Concomitant]
     Dosage: FOR 3 DAYS
     Route: 048
  5. PRISTIQ [Concomitant]
     Route: 048
  6. RESTORIL [Concomitant]
  7. TEMAZEPAM [Concomitant]
     Dosage: AT BEDTIME
     Route: 048
  8. METHSUXIMIDE [Concomitant]
     Route: 048
  9. MULTIVITAMIN [Concomitant]

REACTIONS (5)
  - Status epilepticus [Recovered/Resolved]
  - Convulsion [Recovered/Resolved]
  - Depression [Recovered/Resolved]
  - Acute sinusitis [Recovered/Resolved]
  - Generalised tonic-clonic seizure [Recovered/Resolved]
